FAERS Safety Report 5834104-3 (Version None)
Quarter: 2008Q3

REPORT INFORMATION
  Report Type: 
  Country: None (occurrence: None)
  Receive Date: 20080805
  Receipt Date: 20080730
  Transmission Date: 20090109
  Serious: Yes (Hospitalization)
  Sender: FDA-Public Use
  Company Number: FR-ASTRAZENECA-2008CG01151

PATIENT
  Age: 41 Year
  Sex: Male

DRUGS (8)
  1. FOSCAVIR [Suspect]
     Indication: INFECTION
     Route: 042
     Dates: start: 20080612
  2. CYMEVAN [Suspect]
     Indication: INFECTION
     Route: 042
     Dates: start: 20080612
  3. AVLOCARDYL [Concomitant]
     Route: 048
  4. PANTOPRAZOLE SODIUM [Concomitant]
     Route: 048
  5. SODIUM BICARBONATE [Concomitant]
     Route: 048
  6. CELLCEPT [Concomitant]
     Route: 048
  7. PRODAFALGAN [Concomitant]
     Route: 042
  8. SOLUPRED [Concomitant]
     Route: 048

REACTIONS (2)
  - DIPLOPIA [None]
  - PARAESTHESIA [None]
